FAERS Safety Report 6717132-5 (Version None)
Quarter: 2010Q2

REPORT INFORMATION
  Report Type: 
  Country: None (occurrence: None)
  Receive Date: 20100505
  Receipt Date: 20100421
  Transmission Date: 20101027
  Serious: Yes (Other)
  Sender: FDA-Public Use
  Company Number: 7002397

PATIENT
  Age: 35 Year
  Sex: Female

DRUGS (3)
  1. REBIF [Suspect]
     Indication: DRUG USE FOR UNKNOWN INDICATION
     Dosage: 44 MCG,  3 IN 1 WK , SUBCUTANEOUS
     Route: 058
     Dates: start: 20090610, end: 20100414
  2. GABAPENTIN [Concomitant]
  3. TOPAMAX [Concomitant]

REACTIONS (1)
  - DIABETES MELLITUS [None]
